FAERS Safety Report 14265112 (Version 7)
Quarter: 2021Q1

REPORT INFORMATION
  Report Type: Spontaneous
  Country: GB (occurrence: GB)
  Receive Date: 20171208
  Receipt Date: 20210208
  Transmission Date: 20210419
  Serious: Yes (Hospitalization, Other)
  Sender: FDA-Public Use
  Company Number: GB-SA-2017SA243513

PATIENT
  Age: 25 Year
  Sex: Female

DRUGS (4)
  1. INSULIN ASPART [Suspect]
     Active Substance: INSULIN ASPART
     Indication: TYPE 1 DIABETES MELLITUS
     Dosage: 20 IU,QD
     Route: 058
     Dates: start: 2000, end: 2000
  2. INSULIN ASPART [Suspect]
     Active Substance: INSULIN ASPART
     Dosage: 19 IU,QD
     Route: 058
     Dates: start: 2000
  3. LANTUS [Suspect]
     Active Substance: INSULIN GLARGINE
     Indication: TYPE 1 DIABETES MELLITUS
     Dosage: 45 IU, QD
     Route: 058
     Dates: start: 2000
  4. FOLIC ACID. [Concomitant]
     Active Substance: FOLIC ACID
     Dosage: UNK UNK,UNK
     Route: 065
     Dates: start: 2015, end: 2015

REACTIONS (5)
  - Foetal renal imaging abnormal [Recovering/Resolving]
  - Blood ketone body present [Recovered/Resolved]
  - Hypoglycaemia [Recovered/Resolved]
  - Exposure during pregnancy [Unknown]
  - Vacuum extractor delivery [Recovered/Resolved]

NARRATIVE: CASE EVENT DATE: 20150403
